FAERS Safety Report 8231405-9 (Version None)
Quarter: 2012Q1

REPORT INFORMATION
  Report Type: 
  Country: None (occurrence: None)
  Receive Date: 20120320
  Receipt Date: 20120306
  Transmission Date: 20120608
  Serious: Yes (Hospitalization, Other)
  Sender: FDA-Public Use
  Company Number: 216988

PATIENT
  Age: 64 Year
  Sex: Male

DRUGS (3)
  1. HEPARIN [Suspect]
     Indication: INTRAOPERATIVE CARE
     Dosage: 1500 IU
  2. INNOHEP [Suspect]
     Indication: THROMBOSIS PROPHYLAXIS
     Dosage: 1 DOSES
  3. DANAPAROID (DANAPAROID) [Suspect]
     Indication: ANTICOAGULANT THERAPY

REACTIONS (6)
  - HEPARIN-INDUCED THROMBOCYTOPENIA [None]
  - LIMB AMPUTATION [None]
  - PLATELET COUNT DECREASED [None]
  - NECROSIS ISCHAEMIC [None]
  - ARTERIAL THROMBOSIS LIMB [None]
  - INJECTION SITE NECROSIS [None]
